FAERS Safety Report 5862020-X (Version None)
Quarter: 2008Q3

REPORT INFORMATION
  Report Type: 
  Country: None (occurrence: None)
  Receive Date: 20080827
  Receipt Date: 20071129
  Transmission Date: 20090109
  Serious: No
  Sender: FDA-Public Use
  Company Number: US-ABBOTT-99P-163-0390903-00

PATIENT
  Sex: Male
  Weight: 68.1 kg

DRUGS (8)
  1. NIASPAN [Suspect]
     Indication: HIGH DENSITY LIPOPROTEIN DECREASED
     Route: 048
  2. NIASPAN [Suspect]
     Route: 048
     Dates: start: 19981101, end: 20071115
  3. NIASPAN [Suspect]
     Route: 048
     Dates: start: 20071115
  4. ALENDRONATE SODIUM [Concomitant]
     Indication: OSTEOPOROSIS
     Route: 048
  5. CALCIUM CARBONATE [Concomitant]
     Indication: OSTEOPOROSIS
     Route: 048
  6. TOCOPHEROL CONCENTRATE CAP [Concomitant]
     Indication: SUPPLEMENTATION THERAPY
     Route: 048
  7. MULTI-VITAMIN [Concomitant]
     Indication: SUPPLEMENTATION THERAPY
  8. CALCIUM WITH VITAMIN D [Concomitant]
     Indication: DRUG USE FOR UNKNOWN INDICATION

REACTIONS (2)
  - BLOOD CREATININE INCREASED [None]
  - FLUSHING [None]
